FAERS Safety Report 22143117 (Version 1)
Quarter: 2023Q1

REPORT INFORMATION
  Report Type: Spontaneous
  Country: None (occurrence: CZ)
  Receive Date: 20230327
  Receipt Date: 20230327
  Transmission Date: 20230418
  Serious: Yes (Life-Threatening, Hospitalization, Other)
  Sender: FDA-Public Use
  Company Number: CZ-B.Braun Medical Inc.-2139586

PATIENT
  Age: 30 Year
  Sex: Female
  Weight: 72 kg

DRUGS (14)
  1. SODIUM CHLORIDE [Suspect]
     Active Substance: SODIUM CHLORIDE
     Indication: General anaesthesia
  2. ACETAMINOPHEN [Suspect]
     Active Substance: ACETAMINOPHEN
  3. METAMIZOLE SODIUM [Suspect]
     Active Substance: METAMIZOLE SODIUM
  4. MIDAZOLAM [Suspect]
     Active Substance: MIDAZOLAM
  5. DIAZEPAM [Suspect]
     Active Substance: DIAZEPAM
  6. ALFENTANIL HYDROCHLORIDE [Suspect]
     Active Substance: ALFENTANIL HYDROCHLORIDE
  7. PROPOFOL [Suspect]
     Active Substance: PROPOFOL
  8. ATROPINE SULFATE [Suspect]
     Active Substance: ATROPINE SULFATE
  9. SODIUM CHLORIDE [Suspect]
     Active Substance: SODIUM CHLORIDE
  10. CALCIUM CHLORIDE [Suspect]
     Active Substance: CALCIUM CHLORIDE
  11. POTASSIUM CHLORIDE [Suspect]
     Active Substance: POTASSIUM CHLORIDE
  12. MAGNESIUM CHLORIDE [Suspect]
     Active Substance: MAGNESIUM CHLORIDE
  13. SODIUM CHLORIDE [Suspect]
     Active Substance: SODIUM CHLORIDE
  14. SODIUM CHLORIDE [Suspect]
     Active Substance: SODIUM CHLORIDE

REACTIONS (9)
  - Abdominal pain [Recovered/Resolved]
  - Dyspnoea [Recovered/Resolved]
  - Syncope [Recovered/Resolved]
  - Disseminated intravascular coagulation [Recovered/Resolved]
  - Expired product administered [Recovered/Resolved]
  - Product quality issue [Recovered/Resolved]
  - Vomiting [Recovered/Resolved]
  - Pleural effusion [Recovered/Resolved]
  - Off label use [Recovered/Resolved]
